FAERS Safety Report 8649023 (Version 2)
Quarter: 2012Q4

REPORT INFORMATION
  Report Type: 
  Country: SZ (occurrence: CH)
  Receive Date: 20120704
  Receipt Date: 20121015
  Transmission Date: 20130627
  Serious: Yes (Disabling, Other)
  Sender: FDA-Public Use
  Company Number: PHHY2012CH056648

PATIENT
  Age: 61 Year
  Sex: Female

DRUGS (3)
  1. FEMARA [Suspect]
     Indication: BREAST CANCER
     Dosage: 20 mg, daily
     Dates: start: 20120201, end: 20120220
  2. CRESTOR [Concomitant]
     Dosage: UNK UKN, UNK
  3. EUTHYROX [Concomitant]
     Dosage: UNK UKN, UNK

REACTIONS (4)
  - Optic neuritis [Unknown]
  - Blindness [Unknown]
  - Papilloedema [Recovered/Resolved]
  - Optic atrophy [Unknown]
